FAERS Safety Report 14304475 (Version 1)
Quarter: 2017Q4

REPORT INFORMATION
  Report Type: Spontaneous
  Country: JP (occurrence: JP)
  Receive Date: 20171219
  Receipt Date: 20171219
  Transmission Date: 20180321
  Serious: Yes (Hospitalization)
  Sender: FDA-Public Use
  Company Number: JP-OTSUKA-JP-2012-10771

PATIENT
  Age: 80 Year
  Sex: Female

DRUGS (11)
  1. ABILIFY [Suspect]
     Active Substance: ARIPIPRAZOLE
     Indication: HALLUCINATION
     Dosage: 3 MG, QD
     Route: 048
     Dates: start: 20111227, end: 20120206
  2. AMANTADINE HYDROCHLORIDE. [Suspect]
     Active Substance: AMANTADINE HYDROCHLORIDE
     Dosage: TABS  16JAN-17JAN2012,50MG,BID  18JAN-23FEB2012,50MG,TID
     Route: 048
     Dates: start: 20120116, end: 20120223
  3. EC DOPARL [Concomitant]
     Active Substance: BENSERAZIDE HYDROCHLORIDE\LEVODOPA
     Dosage: 100 MG, QD
     Route: 048
     Dates: start: 20120105, end: 20120109
  4. EXCEGRAN [Suspect]
     Active Substance: ZONISAMIDE
     Indication: DELUSION
  5. AMANTADINE HYDROCHLORIDE. [Suspect]
     Active Substance: AMANTADINE HYDROCHLORIDE
     Dosage: 50 MG, TID
     Route: 048
     Dates: start: 20120118, end: 20120223
  6. EC-DOPARL [Concomitant]
     Active Substance: BENSERAZIDE HYDROCHLORIDE\LEVODOPA
     Dosage: TABS
     Dates: start: 20120105
  7. AMANTADINE HYDROCHLORIDE. [Suspect]
     Active Substance: AMANTADINE HYDROCHLORIDE
     Dosage: 50 MG, BID
     Route: 048
     Dates: start: 20120116, end: 20120117
  8. EC DOPARL [Concomitant]
     Active Substance: BENSERAZIDE HYDROCHLORIDE\LEVODOPA
     Dosage: 100 MG, TID
     Route: 048
     Dates: start: 20120112
  9. ABILIFY [Suspect]
     Active Substance: ARIPIPRAZOLE
     Indication: DELUSION
  10. EXCEGRAN [Suspect]
     Active Substance: ZONISAMIDE
     Indication: HALLUCINATION
     Dosage: 100 MG, QD
     Route: 048
     Dates: start: 20120116, end: 20120206
  11. EC DOPARL [Concomitant]
     Active Substance: BENSERAZIDE HYDROCHLORIDE\LEVODOPA
     Dosage: 100 MG, BID
     Route: 048
     Dates: start: 20120110, end: 20120111

REACTIONS (1)
  - Hepatic function abnormal [Recovering/Resolving]

NARRATIVE: CASE EVENT DATE: 20120206
